FAERS Safety Report 26091866 (Version 3)
Quarter: 2025Q4

REPORT INFORMATION
  Report Type: Spontaneous
  Country: IQ (occurrence: IQ)
  Receive Date: 20251126
  Receipt Date: 20251225
  Transmission Date: 20260118
  Serious: Yes (Disabling, Other)
  Sender: SANOFI AVENTIS
  Company Number: IQ-SA-2025SA351662

PATIENT
  Age: 30 Month
  Sex: Female
  Weight: 8 kg

DRUGS (2)
  1. CEREZYME [Suspect]
     Active Substance: IMIGLUCERASE
     Indication: Gaucher^s disease type III
     Dosage: 600 U (60 U/KG), QOW
  2. CEREZYME [Suspect]
     Active Substance: IMIGLUCERASE
     Dosage: 420 U (60 U/KG), QOW

REACTIONS (4)
  - Optic atrophy [Unknown]
  - Blindness [Unknown]
  - Condition aggravated [Unknown]
  - Cardiac disorder [Unknown]

NARRATIVE: CASE EVENT DATE: 20251110
